FAERS Safety Report 9879962 (Version 4)
Quarter: 2014Q2

REPORT INFORMATION
  Report Type: Spontaneous
  Country: IT (occurrence: IT)
  Receive Date: 20140207
  Receipt Date: 20140414
  Transmission Date: 20141212
  Serious: Yes (Other)
  Sender: FDA-Public Use
  Company Number: IT-ROCHE-1344241

PATIENT
  Age: 66 Year
  Sex: Female
  Weight: 60 kg

DRUGS (9)
  1. AVASTIN [Suspect]
     Indication: ADENOCARCINOMA OF COLON
     Route: 065
     Dates: start: 20140103, end: 20140326
  2. TRIMETON (ITALY) [Concomitant]
     Indication: PREMEDICATION
     Route: 030
     Dates: start: 20140103, end: 20140103
  3. RANIDIL [Concomitant]
     Indication: PREMEDICATION
     Route: 042
     Dates: start: 20140103, end: 20140103
  4. MEGACORT [Concomitant]
     Indication: PREMEDICATION
     Route: 042
     Dates: start: 20140103, end: 20140103
  5. ZOFRAN [Concomitant]
     Indication: PREMEDICATION
     Route: 042
     Dates: start: 20140103, end: 20140103
  6. LEVOFOLENE [Concomitant]
     Route: 042
     Dates: start: 20140103, end: 20140103
  7. FLUOROURACIL [Concomitant]
     Route: 042
     Dates: start: 20140102, end: 20140103
  8. ULTRAPROCT (CINCHOCAINE HYDROCHLORIDE/FLUOCORTOLONE HEXANOATE/FLUOCORT [Concomitant]
     Route: 065
     Dates: start: 20090101, end: 20140104
  9. PANTOPAN [Concomitant]
     Route: 065
     Dates: start: 20090101, end: 20140104

REACTIONS (4)
  - Ageusia [Not Recovered/Not Resolved]
  - Paraesthesia [Not Recovered/Not Resolved]
  - Salivary hypersecretion [Not Recovered/Not Resolved]
  - Rectal haemorrhage [Recovered/Resolved]
